FAERS Safety Report 17542313 (Version 2)
Quarter: 2020Q2

REPORT INFORMATION
  Report Type: Spontaneous
  Country: AL (occurrence: AL)
  Receive Date: 20200313
  Receipt Date: 20200403
  Transmission Date: 20200713
  Serious: Yes (Other)
  Sender: FDA-Public Use
  Company Number: AL-ROCHE-2568332

PATIENT
  Age: 65 Year
  Sex: Male

DRUGS (1)
  1. GAZYVA [Suspect]
     Active Substance: OBINUTUZUMAB
     Indication: PRODUCT USED FOR UNKNOWN INDICATION
     Route: 042

REACTIONS (2)
  - Hypotension [Recovered/Resolved]
  - Dyspnoea [Recovered/Resolved]
